FAERS Safety Report 21366316 (Version 3)
Quarter: 2024Q1

REPORT INFORMATION
  Report Type: Spontaneous
  Country: US (occurrence: US)
  Receive Date: 20220922
  Receipt Date: 20240110
  Transmission Date: 20240409
  Serious: Yes (Other)
  Sender: FDA-Public Use
  Company Number: US-PURDUE PHARMA-USA-2022-0293717

PATIENT
  Sex: Female

DRUGS (2)
  1. BUTRANS [Suspect]
     Active Substance: BUPRENORPHINE
     Indication: Pain management
     Dosage: UNKNOWN
     Route: 062
  2. BUTRANS [Suspect]
     Active Substance: BUPRENORPHINE
     Dosage: 10 MCG/HR, WEEKLY (ONCE A WEEK)
     Route: 062
     Dates: start: 202205

REACTIONS (8)
  - Delirium [Recovered/Resolved]
  - Feeling hot [Unknown]
  - Dizziness [Recovered/Resolved]
  - Application site rash [Unknown]
  - Application site pruritus [Unknown]
  - Dyspnoea [Recovered/Resolved]
  - Headache [Unknown]
  - Product complaint [Recovered/Resolved]
